FAERS Safety Report 21118949 (Version 1)
Quarter: 2022Q3

REPORT INFORMATION
  Report Type: Spontaneous
  Country: US (occurrence: None)
  Receive Date: 20220721
  Receipt Date: 20220721
  Transmission Date: 20221027
  Serious: Yes (Hospitalization)
  Sender: FDA-Public Use
  Company Number: None

PATIENT
  Age: 18 Month
  Sex: Female

DRUGS (1)
  1. TRACLEER [Suspect]
     Active Substance: BOSENTAN
     Dosage: 16MG BID ORAL
     Route: 048
     Dates: start: 202203

REACTIONS (1)
  - Pulmonary valve stenosis [None]

NARRATIVE: CASE EVENT DATE: 20220101
